FAERS Safety Report 13710573 (Version 1)
Quarter: 2017Q3

REPORT INFORMATION
  Report Type: Spontaneous
  Country: TW (occurrence: TW)
  Receive Date: 20170703
  Receipt Date: 20170703
  Transmission Date: 20171127
  Serious: Yes (Hospitalization)
  Sender: FDA-Public Use
  Company Number: TW-SA-2017SA054628

PATIENT
  Age: 46 Year
  Sex: Male
  Weight: 71 kg

DRUGS (2)
  1. PRIFTIN [Suspect]
     Active Substance: RIFAPENTINE
     Indication: LATENT TUBERCULOSIS
     Route: 048
     Dates: start: 20170216, end: 20170323
  2. ISONIAZID. [Suspect]
     Active Substance: ISONIAZID
     Indication: LATENT TUBERCULOSIS
     Dosage: 300MG
     Route: 065
     Dates: start: 20170216, end: 20170323

REACTIONS (19)
  - Tachycardia [Recovered/Resolved]
  - Alanine aminotransferase increased [Recovered/Resolved]
  - Pruritus [Recovered/Resolved]
  - Back pain [Recovered/Resolved]
  - Aspartate aminotransferase increased [Recovered/Resolved]
  - Bundle branch block right [Recovered/Resolved]
  - Systemic inflammatory response syndrome [Recovered/Resolved]
  - Rash generalised [Recovered/Resolved]
  - Jaundice [Recovered/Resolved]
  - Pyrexia [Recovered/Resolved]
  - Cough [Recovered/Resolved]
  - Drug hypersensitivity [Recovered/Resolved]
  - Urticaria [Recovered/Resolved]
  - Decreased appetite [Recovered/Resolved]
  - Palpitations [Recovered/Resolved]
  - Pruritus generalised [Recovered/Resolved]
  - Dyspnoea [Recovered/Resolved]
  - Erythema [Recovered/Resolved]
  - Myalgia [Recovered/Resolved]

NARRATIVE: CASE EVENT DATE: 201703
